FAERS Safety Report 19683677 (Version 1)
Quarter: 2021Q3

REPORT INFORMATION
  Report Type: Spontaneous
  Country: CN (occurrence: CN)
  Receive Date: 20210810
  Receipt Date: 20210810
  Transmission Date: 20211014
  Serious: Yes (Hospitalization, Other)
  Sender: FDA-Public Use
  Company Number: CN-BAXTER-2021BAX024036

PATIENT
  Age: 24 Year
  Sex: Male
  Weight: 60 kg

DRUGS (5)
  1. HOLOXAN [Suspect]
     Active Substance: IFOSFAMIDE
     Dosage: HOLOXAN 4.5 G + NS 500 ML
     Route: 041
     Dates: start: 20210604, end: 20210607
  2. 0.9% SODIUM CHLORIDE INJECTION [Suspect]
     Active Substance: SODIUM CHLORIDE
     Indication: MEDICATION DILUTION
     Dosage: HOLOXAN 4.5 G + NS 500 ML
     Route: 041
     Dates: start: 20210604, end: 20210607
  3. ETOPOSIDE. [Suspect]
     Active Substance: ETOPOSIDE
     Indication: BONE CANCER
     Dosage: ETOPOSIDE 125 MG + NS 500 ML
     Route: 041
     Dates: start: 20210604, end: 20210607
  4. HOLOXAN [Suspect]
     Active Substance: IFOSFAMIDE
     Indication: BONE CANCER
     Route: 065
  5. 0.9% SODIUM CHLORIDE INJECTION [Suspect]
     Active Substance: SODIUM CHLORIDE
     Dosage: ETOPOSIDE 125 MG + NS 500 ML
     Route: 041
     Dates: start: 20210604, end: 20210607

REACTIONS (3)
  - Pruritus [Unknown]
  - Myelosuppression [Recovering/Resolving]
  - Myelosuppression [Recovered/Resolved]

NARRATIVE: CASE EVENT DATE: 20210613
